FAERS Safety Report 7762517-1 (Version None)
Quarter: 2011Q3

REPORT INFORMATION
  Report Type: 
  Country: None (occurrence: None)
  Receive Date: 20110825
  Receipt Date: 20110517
  Transmission Date: 20111222
  Serious: No
  Sender: FDA-Public Use
  Company Number: 325382

PATIENT
  Age: 50 Year
  Sex: Female

DRUGS (1)
  1. VICTOZA [Suspect]
     Indication: TYPE 2 DIABETES MELLITUS
     Dosage: 1.9 MG QD, SUBCUTANEOUS
     Route: 058

REACTIONS (7)
  - NAUSEA [None]
  - HOT FLUSH [None]
  - BLOOD GLUCOSE ABNORMAL [None]
  - THERAPEUTIC RESPONSE UNEXPECTED [None]
  - INCREASED APPETITE [None]
  - INCORRECT PRODUCT STORAGE [None]
  - DEPRESSION [None]
